FAERS Safety Report 16477640 (Version 2)
Quarter: 2019Q3

REPORT INFORMATION
  Report Type: Report from Study
  Country: DK (occurrence: DK)
  Receive Date: 20190626
  Receipt Date: 20190703
  Transmission Date: 20191004
  Serious: Yes (Hospitalization)
  Sender: FDA-Public Use
  Company Number: DK-ROCHE-2341968

PATIENT
  Age: 72 Year
  Sex: Male
  Weight: 82.4 kg

DRUGS (16)
  1. FUROSEMIDE. [Concomitant]
     Active Substance: FUROSEMIDE
     Route: 065
     Dates: start: 20190107
  2. BUDESONIDE;FORMOTEROL FUMARATE [Concomitant]
     Active Substance: BUDESONIDE\FORMOTEROL FUMARATE
     Dosage: DOSE 1 INHALATION
     Route: 065
     Dates: start: 20181204
  3. LOPERAMIDE [Concomitant]
     Active Substance: LOPERAMIDE
     Route: 065
     Dates: start: 20190123
  4. PARACETAMOL [Concomitant]
     Active Substance: ACETAMINOPHEN
     Route: 065
     Dates: start: 20180911
  5. ONDANSETRON [Concomitant]
     Active Substance: ONDANSETRON
     Route: 065
     Dates: start: 20180917
  6. RO6874281 (FAP IL2V MAB) [Suspect]
     Active Substance: SIMLUKAFUSP ALFA
     Indication: METASTATIC RENAL CELL CARCINOMA
     Dosage: MOST RECENT DOSE 19/JUN/2019
     Route: 042
     Dates: start: 20180917
  7. BEVACIZUMAB. [Suspect]
     Active Substance: BEVACIZUMAB
     Indication: METASTATIC RENAL CELL CARCINOMA
     Dosage: MOST RECENT DOSE 15/MAY/2019
     Route: 042
     Dates: start: 20180917
  8. ATEZOLIZUMAB. [Suspect]
     Active Substance: ATEZOLIZUMAB
     Indication: METASTATIC RENAL CELL CARCINOMA
     Dosage: MOST RECENT DOSE 19/JUN/2019
     Route: 042
     Dates: start: 20180917
  9. HALCION [Concomitant]
     Active Substance: TRIAZOLAM
     Route: 065
     Dates: start: 20180907
  10. TRAMADOL. [Concomitant]
     Active Substance: TRAMADOL
     Route: 065
     Dates: start: 20190125
  11. INNOHEP [Concomitant]
     Active Substance: TINZAPARIN SODIUM
     Dosage: DOSE 14.000 IE
     Route: 065
     Dates: start: 20190222
  12. RANITIDINE. [Concomitant]
     Active Substance: RANITIDINE
     Route: 065
     Dates: start: 20180917
  13. INDOMETHACIN [INDOMETACIN] [Concomitant]
     Active Substance: INDOMETHACIN
     Route: 065
     Dates: start: 20180917
  14. PROPRANOLOL [Concomitant]
     Active Substance: PROPRANOLOL HYDROCHLORIDE
     Indication: TREMOR
     Route: 065
     Dates: start: 20190312
  15. DOMPERIDON [DOMPERIDONE] [Concomitant]
     Route: 065
     Dates: start: 20180917
  16. PETHIDIN [Concomitant]
     Active Substance: MEPERIDINE
     Route: 065
     Dates: start: 20180917

REACTIONS (1)
  - Hypotension [Recovered/Resolved]

NARRATIVE: CASE EVENT DATE: 20190620
